FAERS Safety Report 21683900 (Version 2)
Quarter: 2022Q4

REPORT INFORMATION
  Report Type: Spontaneous
  Country: CA (occurrence: None)
  Receive Date: 20221205
  Receipt Date: 20221212
  Transmission Date: 20230112
  Serious: Yes (Life-Threatening)
  Sender: FDA-Public Use
  Company Number: 2022A396600

PATIENT
  Sex: Female

DRUGS (5)
  1. DAPAGLIFLOZIN [Interacting]
     Active Substance: DAPAGLIFLOZIN
     Indication: Cardiac failure
     Dosage: 10.0MG UNKNOWN
     Route: 048
     Dates: start: 202211, end: 20221205
  2. BISOPROLOL [Interacting]
     Active Substance: BISOPROLOL
     Indication: Blood pressure measurement
     Route: 065
  3. ENTRESTO [Concomitant]
     Active Substance: SACUBITRIL\VALSARTAN
     Route: 065
  4. TETRA [Concomitant]
     Route: 065
  5. VITAMIN D [Concomitant]
     Active Substance: VITAMIN D NOS
     Route: 065

REACTIONS (6)
  - Fatigue [Recovered/Resolved]
  - Drug interaction [Recovered/Resolved]
  - Alopecia [Recovered/Resolved]
  - Seborrhoea [Recovered/Resolved]
  - Hypotension [Recovered/Resolved]
  - Off label use [Unknown]

NARRATIVE: CASE EVENT DATE: 20221205
